FAERS Safety Report 13619414 (Version 1)
Quarter: 2017Q2

REPORT INFORMATION
  Report Type: Not Available
  Country: IR (occurrence: IR)
  Receive Date: 20170606
  Receipt Date: 20170606
  Transmission Date: 20170830
  Serious: Yes (Death)
  Sender: FDA-Public Use
  Company Number: IR-ANIPHARMA-2017-IR-000003

PATIENT
  Sex: 0

DRUGS (4)
  1. CHLORPROMAZINE. [Suspect]
     Active Substance: CHLORPROMAZINE
     Route: 015
  2. LITHIUM CARBONATE (NON-SPECIFIC) [Suspect]
     Active Substance: LITHIUM
     Route: 015
  3. PROPRANOLOL [Suspect]
     Active Substance: PROPRANOLOL HYDROCHLORIDE
     Route: 015
  4. CLONAZEPAM. [Suspect]
     Active Substance: CLONAZEPAM
     Route: 015

REACTIONS (4)
  - Foetal exposure during pregnancy [Fatal]
  - Bradycardia [Fatal]
  - Death [Fatal]
  - Apgar score low [Unknown]
